FAERS Safety Report 5735472-3 (Version None)
Quarter: 2008Q2

REPORT INFORMATION
  Report Type: 
  Country: None (occurrence: None)
  Receive Date: 20080512
  Receipt Date: 20080505
  Transmission Date: 20081010
  Serious: Yes (Disabling)
  Sender: FDA-Public Use
  Company Number: GB-PFIZER INC-2008039593

PATIENT
  Age: 42 Year
  Sex: Male
  Weight: 95.5 kg

DRUGS (3)
  1. TOLTERODINE L-TARTRATE TABLET [Suspect]
     Indication: DYSURIA
     Route: 048
  2. EFFEXOR [Suspect]
     Indication: DEPRESSION
     Dosage: TEXT:BID EVERY DAY
     Route: 048
  3. QUETIAPINE FUMARATE [Suspect]
     Indication: ANXIETY
     Route: 048

REACTIONS (2)
  - DRUG EFFECT DECREASED [None]
  - HYPERTONIA [None]
